FAERS Safety Report 4625395-5 (Version None)
Quarter: 2005Q2

REPORT INFORMATION
  Report Type: 
  Country: None (occurrence: None)
  Receive Date: 20050325
  Receipt Date: 20041210
  Transmission Date: 20051028
  Serious: No
  Sender: FDA-Public Use
  Company Number: US_0411108482

PATIENT
  Age: 70 Year
  Sex: Female
  Weight: 75 kg

DRUGS (13)
  1. FORTEO [Suspect]
     Indication: OSTEOPOROSIS
     Dosage: 20 UG DAY
     Dates: start: 20041105, end: 20041105
  2. GLUCOPHAGE [Concomitant]
  3. NORVASC [Concomitant]
  4. PROTONIX [Concomitant]
  5. HYDROCHLOROTHIAZIDE W/LOSARTAN [Concomitant]
  6. SYNTHROID [Concomitant]
  7. LIPITOR [Concomitant]
  8. TRICOR [Concomitant]
  9. POTASSIUM CHLORIDE [Concomitant]
  10. DIPHENHDYRAMINE [Concomitant]
  11. BABY ASPIRN (ACETYLSALICYLIC ACID) [Concomitant]
  12. CALCIUM CARBONATE W/COLECALCIFEROL [Concomitant]
  13. LASIX [Concomitant]

REACTIONS (2)
  - CHILLS [None]
  - URTICARIA [None]
